FAERS Safety Report 14193572 (Version 1)
Quarter: 2017Q4

REPORT INFORMATION
  Report Type: Spontaneous
  Country: US (occurrence: US)
  Receive Date: 20171115
  Receipt Date: 20171115
  Transmission Date: 20180321
  Serious: No
  Sender: FDA-Public Use
  Company Number: US-BAUSCH-BL-2017-004222

PATIENT
  Sex: Male

DRUGS (1)
  1. XENAZINE [Suspect]
     Active Substance: TETRABENAZINE
     Indication: CHOREA
     Dosage: 25 MG TWICE DAILY/ 37.5 MG AT BEDTIME
     Route: 048
     Dates: start: 20120719

REACTIONS (3)
  - Nervousness [Unknown]
  - Anxiety [Unknown]
  - Treatment noncompliance [Unknown]
